FAERS Safety Report 18171157 (Version 1)
Quarter: 2020Q3

REPORT INFORMATION
  Report Type: Spontaneous
  Country: US (occurrence: US)
  Receive Date: 20200819
  Receipt Date: 20200819
  Transmission Date: 20201103
  Serious: No
  Sender: FDA-Public Use
  Company Number: US-OREXO US, INC.-ORE202002-000013

PATIENT
  Sex: Female

DRUGS (3)
  1. ZUBSOLV [Suspect]
     Active Substance: BUPRENORPHINE HYDROCHLORIDE\NALOXONE HYDROCHLORIDE
     Dosage: ONCE A DAY
  2. ZUBSOLV [Suspect]
     Active Substance: BUPRENORPHINE HYDROCHLORIDE\NALOXONE HYDROCHLORIDE
     Indication: DRUG DEPENDENCE
     Dosage: THREE TIMES A DAY
     Dates: start: 202001
  3. ZUBSOLV [Suspect]
     Active Substance: BUPRENORPHINE HYDROCHLORIDE\NALOXONE HYDROCHLORIDE
     Dosage: REDUCED TO TWICE A DAY

REACTIONS (2)
  - Feeling abnormal [Recovered/Resolved]
  - Asthenia [Recovered/Resolved]

NARRATIVE: CASE EVENT DATE: 2020
